FAERS Safety Report 5364773-6 (Version None)
Quarter: 2007Q2

REPORT INFORMATION
  Report Type: 
  Country: None (occurrence: None)
  Receive Date: 20070530
  Receipt Date: 20070122
  Transmission Date: 20071010
  Serious: No
  Sender: FDA-Public Use
  Company Number: 2006PV010458

PATIENT
  Age: 54 Year
  Sex: Female
  Weight: 89.8122 kg

DRUGS (10)
  1. BYETTA [Suspect]
     Indication: DIABETES MELLITUS NON-INSULIN-DEPENDENT
     Dosage: 10 MCG; SC    ;SC    10 MCG;BID;SC    5 MCG;BID;SC
     Route: 058
     Dates: start: 20060101, end: 20060131
  2. BYETTA [Suspect]
     Indication: DIABETES MELLITUS NON-INSULIN-DEPENDENT
     Dosage: 10 MCG; SC    ;SC    10 MCG;BID;SC    5 MCG;BID;SC
     Route: 058
     Dates: start: 20060101, end: 20060201
  3. BYETTA [Suspect]
     Indication: DIABETES MELLITUS NON-INSULIN-DEPENDENT
     Dosage: 10 MCG; SC    ;SC    10 MCG;BID;SC    5 MCG;BID;SC
     Route: 058
     Dates: start: 20060201
  4. BYETTA [Suspect]
     Indication: DIABETES MELLITUS NON-INSULIN-DEPENDENT
     Dosage: 10 MCG; SC    ;SC    10 MCG;BID;SC    5 MCG;BID;SC
     Route: 058
     Dates: start: 20060201
  5. BYETTA [Suspect]
  6. GLUCOPHAGE [Concomitant]
  7. CHROMOGEN FORTE [Concomitant]
  8. AUGMENTIN '125' [Concomitant]
  9. NIACIN [Concomitant]
  10. METFORMIN HCL [Concomitant]

REACTIONS (7)
  - BLOOD GLUCOSE INCREASED [None]
  - DIZZINESS [None]
  - HERPES ZOSTER [None]
  - MUSCLE SPASMS [None]
  - SCIATICA [None]
  - SWELLING [None]
  - WEIGHT INCREASED [None]
